FAERS Safety Report 8001630-0 (Version None)
Quarter: 2011Q4

REPORT INFORMATION
  Report Type: 
  Country: None (occurrence: None)
  Receive Date: 20111222
  Receipt Date: 20100708
  Transmission Date: 20120403
  Serious: No
  Sender: FDA-Public Use
  Company Number: US-GLAXOSMITHKLINE-A0869203A

PATIENT
  Age: 51 Year
  Sex: Male

DRUGS (1)
  1. NICOTINE POLACRILEX [Suspect]
     Indication: EX-TOBACCO USER

REACTIONS (3)
  - OROPHARYNGEAL DISCOMFORT [None]
  - SENSATION OF FOREIGN BODY [None]
  - LARYNX IRRITATION [None]
